FAERS Safety Report 18308486 (Version 8)
Quarter: 2021Q2

REPORT INFORMATION
  Report Type: Report from Study
  Country: JP (occurrence: JP)
  Receive Date: 20200924
  Receipt Date: 20210616
  Transmission Date: 20210717
  Serious: Yes (Hospitalization)
  Sender: FDA-Public Use
  Company Number: JP-CELGENEUS-JPN-20191107065

PATIENT
  Age: 78 Year
  Sex: Male
  Weight: 67 kg

DRUGS (94)
  1. GRANISETRON HYDROCHLORIDE. [Concomitant]
     Active Substance: GRANISETRON HYDROCHLORIDE
     Indication: PROPHYLAXIS OF NAUSEA AND VOMITING
     Dosage: 1 MILLIGRAM
     Route: 048
     Dates: start: 20190722
  2. ATORVASTATIN CALCIUM. [Concomitant]
     Active Substance: ATORVASTATIN CALCIUM
     Indication: PROPHYLAXIS
     Dosage: UNKNOWN
     Route: 065
     Dates: start: 20191001
  3. ACETAMINOPHEN. [Concomitant]
     Active Substance: ACETAMINOPHEN
     Indication: PROPHYLAXIS
     Dosage: UNKNOWN
     Route: 065
     Dates: start: 20191210, end: 20191210
  4. ACETAMINOPHEN. [Concomitant]
     Active Substance: ACETAMINOPHEN
     Dosage: UNKNOWN
     Route: 065
     Dates: start: 20210210, end: 20210210
  5. FUDOSTEINE [Concomitant]
     Active Substance: FUDOSTEINE
     Indication: PROPHYLAXIS
     Dosage: UNKNOWN
     Route: 065
     Dates: start: 20200430
  6. RITUXIMAB. [Concomitant]
     Active Substance: RITUXIMAB
     Dosage: UNKNOWN
     Route: 065
     Dates: start: 20200918, end: 20200918
  7. RITUXIMAB. [Concomitant]
     Active Substance: RITUXIMAB
     Dosage: UNKNOWN
     Route: 065
     Dates: start: 20201009, end: 20201009
  8. BACLOFEN. [Concomitant]
     Active Substance: BACLOFEN
     Indication: HICCUPS
     Dosage: UNKNOWN
     Route: 065
     Dates: start: 20210510, end: 20210511
  9. CEFEPIME DIHYDROCHLORIDE [Concomitant]
     Active Substance: CEFEPIME HYDROCHLORIDE
     Indication: PROPHYLAXIS
     Dosage: UNKNOWN
     Route: 065
     Dates: start: 20210507, end: 20210523
  10. SOLDEM 1 [Concomitant]
     Active Substance: DEXTROSE\SODIUM CHLORIDE\SODIUM LACTATE
     Indication: PROPHYLAXIS
     Dosage: UNKNOWN
     Route: 065
     Dates: start: 20210509, end: 20210514
  11. AZACITIDINE ORAL (CC?486) [Suspect]
     Active Substance: AZACITIDINE
     Indication: ANGIOIMMUNOBLASTIC T-CELL LYMPHOMA
     Route: 048
     Dates: start: 20190719, end: 20190801
  12. AZACITIDINE ORAL (CC?486) [Suspect]
     Active Substance: AZACITIDINE
     Route: 048
     Dates: start: 20200925
  13. HYDROCORTISONE BUTYRATE. [Concomitant]
     Active Substance: HYDROCORTISONE BUTYRATE
     Indication: PRURITUS
     Dosage: 1 APPLICATION
     Route: 061
     Dates: start: 20190125, end: 20190803
  14. LOPERAMIDE HYDROCHLORIDE. [Concomitant]
     Active Substance: LOPERAMIDE HYDROCHLORIDE
     Indication: DIARRHOEA
     Dosage: 2 MILLIGRAM
     Route: 048
     Dates: start: 20190719, end: 20190719
  15. LULICONAZOLE. [Concomitant]
     Active Substance: LULICONAZOLE
     Indication: TINEA INFECTION
     Dosage: UNKNOWN
     Route: 065
     Dates: start: 20190911, end: 20200325
  16. SENNOSIDE A+B CALCIUM [Concomitant]
     Active Substance: SENNOSIDES A AND B
     Indication: CONSTIPATION
     Dosage: UNKNOWN
     Route: 065
     Dates: start: 20190822, end: 20200429
  17. OFLOXACIN. [Concomitant]
     Active Substance: OFLOXACIN
     Indication: BIOPSY EYELID
     Dosage: UNKNOWN
     Route: 065
     Dates: start: 20191111, end: 20191111
  18. D?CHLORPHENIRAMINE MALEATE [Concomitant]
     Active Substance: DEXCHLORPHENIRAMINE MALEATE
     Dosage: UNKNOWN
     Route: 065
     Dates: start: 20201009, end: 20201009
  19. RITUXIMAB. [Concomitant]
     Active Substance: RITUXIMAB
     Indication: EPSTEIN-BARR VIRUS INFECTION
     Dosage: UNKNOWN
     Route: 065
     Dates: start: 20191210, end: 20191210
  20. RITUXIMAB. [Concomitant]
     Active Substance: RITUXIMAB
     Dosage: UNKNOWN
     Route: 065
     Dates: start: 20201022, end: 20201022
  21. CLONAZEPAM. [Concomitant]
     Active Substance: CLONAZEPAM
     Indication: HICCUPS
     Dosage: UNKNOWN
     Route: 065
     Dates: start: 20200922, end: 20200922
  22. ALFACALCIDOL [Concomitant]
     Active Substance: ALFACALCIDOL
     Indication: OSTEOPOROSIS PROPHYLAXIS
     Dosage: 0.5 MICROGRAM
     Route: 048
     Dates: start: 20181227
  23. LOPERAMIDE HYDROCHLORIDE. [Concomitant]
     Active Substance: LOPERAMIDE HYDROCHLORIDE
     Indication: PROPHYLAXIS AGAINST DIARRHOEA
     Dosage: 2 MILLIGRAM
     Route: 048
     Dates: start: 20190720, end: 20190724
  24. MAGNESIUM OXIDE. [Concomitant]
     Active Substance: MAGNESIUM OXIDE
     Indication: CONSTIPATION
     Dosage: UNKNOWN
     Route: 065
     Dates: start: 20190726
  25. BIOTIN [Concomitant]
     Active Substance: BIOTIN
     Indication: TINEA PEDIS
     Dosage: UNKNOWN
     Route: 065
     Dates: start: 20191218, end: 20200121
  26. LIDOCAIN [Concomitant]
     Active Substance: LIDOCAINE
     Indication: BONE MARROW DISORDER
     Dosage: UNKNOWN
     Route: 065
     Dates: start: 20210506, end: 20210506
  27. TSUMURA SHAKUYAKUKANZOTO [Concomitant]
     Active Substance: HERBALS
     Indication: MUSCLE SPASMS
     Dosage: UNKNOWN
     Route: 065
     Dates: start: 20200430, end: 20200527
  28. SOLDEM 3A [Concomitant]
     Active Substance: CARBOHYDRATES\POTASSIUM CHLORIDE\SODIUM CHLORIDE\SODIUM LACTATE
     Dosage: UNKNOWN
     Route: 065
     Dates: start: 20200919, end: 20200923
  29. RITUXIMAB. [Concomitant]
     Active Substance: RITUXIMAB
     Dosage: UNKNOWN
     Route: 065
     Dates: start: 20210210, end: 20210210
  30. HYDROCORTISONE SODIUM [Concomitant]
     Active Substance: HYDROCORTISONE SODIUM SUCCINATE
     Indication: INFUSION RELATED REACTION
     Dosage: UNKNOWN
     Route: 065
     Dates: start: 20191210, end: 20191210
  31. INFLUENZA HA VACCINE [Concomitant]
     Active Substance: INFLUENZA VIRUS VACCINE
     Indication: PROPHYLAXIS
     Dosage: UNKNOWN
     Route: 065
     Dates: start: 20201119, end: 20201119
  32. SODIUM FERROUS CITRATE [Concomitant]
     Active Substance: SODIUM FERROUS CITRATE
     Indication: PROPHYLAXIS
     Dosage: UNKNOWN
     Route: 065
     Dates: start: 20210312, end: 20210507
  33. SOLDEM 1 [Concomitant]
     Active Substance: DEXTROSE\SODIUM CHLORIDE\SODIUM LACTATE
     Dosage: UNKNOWN
     Route: 065
     Dates: start: 20210521, end: 20210524
  34. SOLDEM [Concomitant]
     Active Substance: DEXTROSE\POTASSIUM CHLORIDE\SODIUM CHLORIDE\SODIUM LACTATE
     Indication: PROPHYLAXIS AGAINST DEHYDRATION
     Dosage: 1000 MILLILITER
     Route: 041
     Dates: start: 20190719, end: 20190723
  35. METOCLOPRAMIDE HYDROCHLORIDE. [Concomitant]
     Active Substance: METOCLOPRAMIDE HYDROCHLORIDE
     Indication: VOMITING
     Dosage: 10 MILLIGRAM
     Route: 041
     Dates: start: 20190719, end: 20190719
  36. HYDROXYZINE HYDROCHLORIDE. [Concomitant]
     Active Substance: HYDROXYZINE HYDROCHLORIDE
     Indication: VOMITING
     Dosage: 25 MILLIGRAM
     Route: 041
     Dates: start: 20190719, end: 20190719
  37. RABEPRAZOLE [Concomitant]
     Active Substance: RABEPRAZOLE
     Indication: PROPHYLAXIS
     Dosage: UNKNOWN
     Route: 065
     Dates: start: 20191001
  38. D?CHLORPHENIRAMINE MALEATE [Concomitant]
     Active Substance: DEXCHLORPHENIRAMINE MALEATE
     Indication: PROPHYLAXIS
     Dosage: UNKNOWN
     Route: 065
     Dates: start: 20191210, end: 20191210
  39. D?CHLORPHENIRAMINE MALEATE [Concomitant]
     Active Substance: DEXCHLORPHENIRAMINE MALEATE
     Dosage: UNKNOWN
     Route: 065
     Dates: start: 20200923, end: 20200923
  40. D?CHLORPHENIRAMINE MALEATE [Concomitant]
     Active Substance: DEXCHLORPHENIRAMINE MALEATE
     Dosage: UNKNOWN
     Route: 065
     Dates: start: 20201216, end: 20201216
  41. ACETAMINOPHEN. [Concomitant]
     Active Substance: ACETAMINOPHEN
     Dosage: UNKNOWN
     Route: 065
     Dates: start: 20201022, end: 20201022
  42. SOLACET F [Concomitant]
     Active Substance: CALCIUM CHLORIDE\POTASSIUM CHLORIDE\SODIUM ACETATE\SODIUM CHLORIDE
     Indication: BIOPSY EYELID
     Dosage: UNKNOWN
     Route: 065
     Dates: start: 20191111, end: 20191111
  43. GATIFLOXACIN HYDRATE [Concomitant]
     Indication: PREMEDICATION
     Dosage: UNKNOWN
     Route: 065
     Dates: start: 20191108, end: 20191111
  44. FUROSEMIDE. [Concomitant]
     Active Substance: FUROSEMIDE
     Indication: PROPHYLAXIS
     Dosage: UNKNOWN
     Route: 065
     Dates: start: 20210509, end: 20210509
  45. PALONOSETRON HYDROCHLORIDE. [Concomitant]
     Active Substance: PALONOSETRON HYDROCHLORIDE
     Indication: PROPHYLAXIS
     Dosage: UNKNOWN
     Route: 065
     Dates: start: 20210508, end: 20210508
  46. FILGRASTIM [Concomitant]
     Active Substance: FILGRASTIM
     Indication: NEUTROPENIA
     Dosage: UNKNOWN
     Route: 065
     Dates: start: 20210517, end: 20210521
  47. PREDNISOLONE. [Concomitant]
     Active Substance: PREDNISOLONE
     Indication: ANGIOIMMUNOBLASTIC T-CELL LYMPHOMA
     Dosage: UNKNOWN
     Route: 065
     Dates: start: 20170208, end: 20170609
  48. ACETAMINOPHEN. [Concomitant]
     Active Substance: ACETAMINOPHEN
     Dosage: UNKNOWN
     Route: 065
     Dates: start: 20200923, end: 20200923
  49. LIDOCAIN [Concomitant]
     Active Substance: LIDOCAINE
     Indication: BIOPSY EYELID
     Dosage: UNKNOWN
     Route: 065
     Dates: start: 20191111, end: 20191111
  50. TSUMURA SHAKUYAKUKANZOTO [Concomitant]
     Active Substance: HERBALS
     Dosage: UNKNOWN
     Route: 065
     Dates: start: 20201022
  51. BROTIZOLAM [Concomitant]
     Active Substance: BROTIZOLAM
     Indication: INSOMNIA
     Dosage: UNKNOWN
     Route: 065
     Dates: start: 20200722
  52. ADRENALINE [Concomitant]
     Active Substance: EPINEPHRINE
     Indication: BIOPSY EYELID
     Dosage: UNKNOWN
     Route: 065
     Dates: start: 20191111, end: 20191111
  53. LEVOFLOXACIN HEMIHYDRATE [Concomitant]
     Active Substance: LEVOFLOXACIN
     Indication: PROPHYLAXIS
     Dosage: UNKNOWN
     Route: 065
     Dates: start: 20210513
  54. POTASSIUM L?ASPARTATE [Concomitant]
     Active Substance: POTASSIUM ASPARTATE ANHYDROUS
     Indication: PROPHYLAXIS
     Dosage: UNKNOWN
     Route: 065
     Dates: start: 20210518, end: 20210521
  55. AZACITIDINE ORAL (CC?486) [Suspect]
     Active Substance: AZACITIDINE
     Route: 048
     Dates: start: 20191114, end: 20191119
  56. PREDNISOLONE. [Concomitant]
     Active Substance: PREDNISOLONE
     Dosage: 10 MILLIGRAM
     Route: 048
     Dates: start: 20180802
  57. SULFAMETHOXAZOLE/TRIMETHOPRIM [Concomitant]
     Active Substance: SULFAMETHOXAZOLE\TRIMETHOPRIM
     Indication: INFECTION PROPHYLAXIS
     Dosage: 0.5 TABLET
     Route: 048
     Dates: start: 20190122
  58. ASPIRIN. [Concomitant]
     Active Substance: ASPIRIN
     Indication: CAROTID ARTERY STENOSIS
     Dosage: 100 MILLIGRAM
     Route: 048
     Dates: start: 2011
  59. LULICONAZOLE. [Concomitant]
     Active Substance: LULICONAZOLE
     Indication: TINEA PEDIS
     Dosage: UNKNOWN
     Route: 065
     Dates: start: 20190911
  60. OFLOXACIN. [Concomitant]
     Active Substance: OFLOXACIN
     Indication: DIFFUSE LARGE B-CELL LYMPHOMA
     Dosage: UNKNOWN
     Route: 065
     Dates: start: 20190830, end: 20190917
  61. LACTULOSE. [Concomitant]
     Active Substance: LACTULOSE
     Indication: CONSTIPATION
     Dosage: UNKNOWN
     Route: 065
     Dates: start: 20200107, end: 20200120
  62. D?CHLORPHENIRAMINE MALEATE [Concomitant]
     Active Substance: DEXCHLORPHENIRAMINE MALEATE
     Dosage: UNKNOWN
     Route: 065
     Dates: start: 20210210, end: 20210210
  63. ACETAMINOPHEN. [Concomitant]
     Active Substance: ACETAMINOPHEN
     Dosage: UNKNOWN
     Route: 065
     Dates: start: 20201216, end: 20201216
  64. SOLDEM 3A [Concomitant]
     Active Substance: CARBOHYDRATES\POTASSIUM CHLORIDE\SODIUM CHLORIDE\SODIUM LACTATE
     Indication: PROPHYLAXIS
     Dosage: UNKNOWN
     Route: 065
     Dates: start: 20200901, end: 20200901
  65. RITUXIMAB. [Concomitant]
     Active Substance: RITUXIMAB
     Dosage: UNKNOWN
     Route: 065
     Dates: start: 20201216, end: 20201216
  66. HYDROCORTISONE SODIUM [Concomitant]
     Active Substance: HYDROCORTISONE SODIUM SUCCINATE
     Dosage: UNKNOWN
     Route: 065
     Dates: start: 20200918, end: 20200918
  67. IODINE. [Concomitant]
     Active Substance: IODINE
     Indication: BIOPSY EYELID
     Dosage: UNKNOWN
     Route: 065
     Dates: start: 20191111, end: 20191111
  68. POLYVINYL ALCOHOL [Concomitant]
     Active Substance: POLYVINYL ALCOHOL
     Indication: BIOPSY EYELID
     Dosage: UNKNOWN
     Route: 065
     Dates: start: 20191111, end: 20191111
  69. BETAMETHASONE SODIUM PHOSPHATE [Concomitant]
     Active Substance: BETAMETHASONE SODIUM PHOSPHATE
     Indication: BIOPSY EYELID
     Dosage: UNKNOWN
     Route: 065
     Dates: start: 20191111, end: 20191111
  70. SODIUM FERROUS CITRATE [Concomitant]
     Active Substance: SODIUM FERROUS CITRATE
     Indication: ANAEMIA
     Dosage: UNKNOWN
     Route: 065
     Dates: start: 20210210, end: 20210311
  71. KETOPROFEN. [Concomitant]
     Active Substance: KETOPROFEN
     Indication: PAIN
     Dosage: UNKNOWN
     Route: 065
     Dates: start: 20210516
  72. GLYCERINE [Concomitant]
     Active Substance: GLYCERIN
     Indication: CONSTIPATION
     Dosage: UNKNOWN
     Route: 065
     Dates: start: 20190727, end: 20190727
  73. FEBUXOSTAT. [Concomitant]
     Active Substance: FEBUXOSTAT
     Indication: HYPERURICAEMIA
     Dosage: UNKNOWN
     Route: 065
     Dates: start: 20190729
  74. FLUCONAZOLE. [Concomitant]
     Active Substance: FLUCONAZOLE
     Indication: TINEA INFECTION
     Dosage: UNKNOWN
     Route: 065
     Dates: start: 20190829, end: 20190925
  75. LUBIPROSTONE [Concomitant]
     Active Substance: LUBIPROSTONE
     Indication: CONSTIPATION
     Dosage: UNKNOWN
     Route: 065
     Dates: start: 20190911, end: 20200819
  76. LUBIPROSTONE [Concomitant]
     Active Substance: LUBIPROSTONE
     Dosage: UNKNOWN
     Route: 065
     Dates: start: 20200922
  77. ACETAMINOPHEN. [Concomitant]
     Active Substance: ACETAMINOPHEN
     Dosage: UNKNOWN
     Route: 065
     Dates: start: 20201009, end: 20201009
  78. RITUXIMAB. [Concomitant]
     Active Substance: RITUXIMAB
     Dosage: UNKNOWN
     Route: 065
     Dates: start: 20200923, end: 20200923
  79. OXYBUPROCAINE HYDROCHLORIDE [Concomitant]
     Active Substance: BENOXINATE HYDROCHLORIDE
     Indication: BIOPSY EYELID
     Dosage: UNKNOWN
     Route: 065
     Dates: start: 20191111, end: 20191111
  80. POTASSIUM L?ASPARTATE [Concomitant]
     Active Substance: POTASSIUM ASPARTATE ANHYDROUS
     Indication: HYPOKALAEMIA
     Dosage: UNKNOWN
     Route: 065
     Dates: start: 20210514, end: 20210517
  81. AZACITIDINE ORAL (CC?486) [Suspect]
     Active Substance: AZACITIDINE
     Dosage: UNKNOWN
     Route: 048
     Dates: start: 20191120, end: 20200918
  82. AZACITIDINE ORAL (CC?486) [Suspect]
     Active Substance: AZACITIDINE
     Route: 048
     Dates: start: 20210409, end: 20210422
  83. CANDESARTAN CILEXETIL. [Concomitant]
     Active Substance: CANDESARTAN CILEXETIL
     Indication: CAROTID ARTERY STENOSIS
     Dosage: 4 MILLIGRAM
     Route: 048
     Dates: start: 2011, end: 20190722
  84. GRANISETRON HYDROCHLORIDE. [Concomitant]
     Active Substance: GRANISETRON HYDROCHLORIDE
     Indication: VOMITING
     Dosage: 1 MILLIGRAM
     Route: 041
     Dates: start: 20190719, end: 20190719
  85. CEFACLOR. [Concomitant]
     Active Substance: CEFACLOR
     Indication: DIFFUSE LARGE B-CELL LYMPHOMA
     Dosage: UNKNOWN
     Route: 065
     Dates: start: 20190830, end: 20190905
  86. CLOPIDOGREL SULFATE [Concomitant]
     Active Substance: CLOPIDOGREL BISULFATE
     Indication: PROPHYLAXIS
     Dosage: UNKNOWN
     Route: 065
     Dates: start: 20191001
  87. DIFLUPREDNATE [Concomitant]
     Active Substance: DIFLUPREDNATE
     Indication: RASH
     Dosage: UNKNOWN
     Route: 065
     Dates: start: 20191016, end: 20201021
  88. D?CHLORPHENIRAMINE MALEATE [Concomitant]
     Active Substance: DEXCHLORPHENIRAMINE MALEATE
     Indication: INFUSION RELATED REACTION
     Dosage: UNKNOWN
     Route: 065
     Dates: start: 20200918, end: 20200918
  89. D?CHLORPHENIRAMINE MALEATE [Concomitant]
     Active Substance: DEXCHLORPHENIRAMINE MALEATE
     Dosage: UNKNOWN
     Route: 065
     Dates: start: 20201022, end: 20201022
  90. ACETAMINOPHEN. [Concomitant]
     Active Substance: ACETAMINOPHEN
     Dosage: UNKNOWN
     Route: 065
     Dates: start: 20200918, end: 20200918
  91. CEFAZOLIN SODIUM. [Concomitant]
     Active Substance: CEFAZOLIN SODIUM
     Indication: BIOPSY EYELID
     Dosage: UNKNOWN
     Route: 065
     Dates: start: 20191111, end: 20191111
  92. FRADIOMYCIN SULFATE [Concomitant]
     Indication: BIOPSY EYELID
     Dosage: UNKNOWN
     Route: 065
     Dates: start: 20191111, end: 20191111
  93. FUROSEMIDE. [Concomitant]
     Active Substance: FUROSEMIDE
     Dosage: UNKNOWN
     Route: 065
     Dates: start: 20210512, end: 20210512
  94. FOSAPREPITANT MEGLUMINE [Concomitant]
     Active Substance: FOSAPREPITANT
     Indication: PROPHYLAXIS
     Dosage: UNKNOWN
     Route: 065
     Dates: start: 20210508, end: 20210508

REACTIONS (1)
  - Epstein-Barr virus associated lymphoproliferative disorder [Not Recovered/Not Resolved]

NARRATIVE: CASE EVENT DATE: 20190722
